FAERS Safety Report 4569185-0 (Version None)
Quarter: 2005Q1

REPORT INFORMATION
  Report Type: 
  Country: None (occurrence: None)
  Receive Date: 20050125
  Receipt Date: 20050112
  Transmission Date: 20050727
  Serious: Yes (Life-Threatening)
  Sender: FDA-Public Use
  Company Number: THYM-10399

PATIENT
  Age: 40 Year
  Sex: Male

DRUGS (11)
  1. THYMOGLOBULIN [Suspect]
     Indication: IMMUNOSUPPRESSION
     Dosage: 1.25MG/KG QD IV
     Route: 042
     Dates: start: 20041003, end: 20041005
  2. THYMOGLOBULIN [Suspect]
     Indication: PANCREAS TRANSPLANT
     Dosage: 1.25MG/KG QD IV
     Route: 042
     Dates: start: 20041003, end: 20041005
  3. THYMOGLOBULIN [Suspect]
     Indication: RENAL TRANSPLANT
     Dosage: 1.25MG/KG QD IV
     Route: 042
     Dates: start: 20041003, end: 20041005
  4. PREDNISONE [Concomitant]
  5. SIROLIMUS [Concomitant]
  6. TACROLIMUS [Concomitant]
  7. METRONIDAZOLE [Concomitant]
  8. CEFTRIAXONE [Concomitant]
  9. GANCICLOVIR [Concomitant]
  10. AMPHOTERICIN B [Concomitant]
  11. HEPARIN [Concomitant]

REACTIONS (2)
  - ATRIAL FIBRILLATION [None]
  - SINUS TACHYCARDIA [None]
